FAERS Safety Report 7157251-5 (Version None)
Quarter: 2010Q4

REPORT INFORMATION
  Report Type: 
  Country: None (occurrence: None)
  Receive Date: 20101214
  Receipt Date: 20101207
  Transmission Date: 20110411
  Serious: Yes (Death)
  Sender: FDA-Public Use
  Company Number: PHHY2010US84027

PATIENT
  Age: 19 Year
  Sex: Female
  Weight: 41.27 kg

DRUGS (1)
  1. TOBI [Suspect]
     Indication: CYSTIC FIBROSIS
     Dosage: 300 MG, BID (01 AMPOULE)
     Dates: start: 20080514, end: 20100411

REACTIONS (1)
  - DEATH [None]
